FAERS Safety Report 9395587 (Version 2)
Quarter: 2013Q3

REPORT INFORMATION
  Report Type: Spontaneous
  Country: DK (occurrence: DK)
  Receive Date: 20130711
  Receipt Date: 20130715
  Transmission Date: 20140515
  Serious: Yes (Death, Hospitalization)
  Sender: FDA-Public Use
  Company Number: PHHY2013DK072533

PATIENT
  Sex: Male

DRUGS (4)
  1. DICILLIN [Suspect]
     Indication: INFECTION
     Dosage: 500 MG, TID
     Route: 048
     Dates: start: 20120119
  2. CIPROFLOXACIN ACTAVIS [Suspect]
     Indication: INFECTION
     Dosage: 500 MG, BID
     Route: 048
     Dates: start: 20120119
  3. FENYTOIN DAK [Suspect]
  4. ZINACEF [Suspect]
     Indication: INFECTION

REACTIONS (6)
  - General physical health deterioration [Fatal]
  - Dialysis [None]
  - Renal failure [None]
  - Myocardial ischaemia [None]
  - Cerebral infarction [None]
  - Multi-organ failure [None]
